FAERS Safety Report 21187408 (Version 1)
Quarter: 2022Q3

REPORT INFORMATION
  Report Type: Report from Study
  Country: US (occurrence: US)
  Receive Date: 20220808
  Receipt Date: 20220808
  Transmission Date: 20221026
  Serious: No
  Sender: FDA-Public Use
  Company Number: US-INCYTE CORPORATION-2022IN006423

PATIENT

DRUGS (1)
  1. JAKAFI [Suspect]
     Active Substance: RUXOLITINIB
     Indication: Essential thrombocythaemia
     Dosage: ORIGINALLY I WAS DOING 3 AND 3. THEN 3 AND 2, I STARTED SKIPPING TO EVERY OTHER DAY
     Route: 065

REACTIONS (2)
  - Off label use [Unknown]
  - Dry eye [Unknown]
